FAERS Safety Report 10647704 (Version 4)
Quarter: 2018Q2

REPORT INFORMATION
  Report Type: Spontaneous
  Country: BR (occurrence: BR)
  Receive Date: 20141212
  Receipt Date: 20180618
  Transmission Date: 20180711
  Serious: Yes (Hospitalization, Other)
  Sender: FDA-Public Use
  Company Number: BR-AMGEN-BRASP2014096017

PATIENT
  Age: 33 Year
  Sex: Male
  Weight: 32 kg

DRUGS (4)
  1. CALCIUM [Concomitant]
     Active Substance: CALCIUM
     Dosage: UNK
  2. ENBREL [Suspect]
     Active Substance: ETANERCEPT
     Indication: RHEUMATOID ARTHRITIS
     Dosage: 50 MG, EVERY 8 DAYS
     Route: 065
     Dates: start: 2002
  3. ENBREL [Suspect]
     Active Substance: ETANERCEPT
     Indication: JUVENILE IDIOPATHIC ARTHRITIS
     Dosage: 50 MG, QWK
     Route: 065
     Dates: start: 2010, end: 20180312
  4. CALCIUM CITRATE + D [Concomitant]
     Dosage: UNK

REACTIONS (7)
  - Nephrolithiasis [Not Recovered/Not Resolved]
  - Rheumatic fever [Unknown]
  - Gallbladder abscess [Recovered/Resolved]
  - Off label use [Unknown]
  - Cholelithiasis [Recovered/Resolved]
  - Pain [Unknown]
  - Bone deformity [Unknown]

NARRATIVE: CASE EVENT DATE: 2002
